FAERS Safety Report 5411100-1 (Version None)
Quarter: 2007Q3

REPORT INFORMATION
  Report Type: 
  Country: None (occurrence: None)
  Receive Date: 20070713
  Receipt Date: 20070416
  Transmission Date: 20080115
  Serious: No
  Sender: FDA-Public Use
  Company Number: 2007SP001377

PATIENT
  Age: 79 Year
  Sex: Male
  Weight: 72.5755 kg

DRUGS (2)
  1. LUNESTA [Suspect]
     Indication: INSOMNIA
     Dosage: 1 MG;ORAL ; 2 MG;ORAL ; 1.5 MG;ORAL
     Route: 048
     Dates: start: 20060501
  2. NO-DOZ [Concomitant]

REACTIONS (3)
  - DRUG INEFFECTIVE [None]
  - INSOMNIA [None]
  - SOMNOLENCE [None]
